FAERS Safety Report 9239911 (Version 2)
Quarter: 2013Q2

REPORT INFORMATION
  Report Type: Spontaneous
  Country: US (occurrence: US)
  Receive Date: 20130418
  Receipt Date: 20130506
  Transmission Date: 20140414
  Serious: Yes (Other)
  Sender: FDA-Public Use
  Company Number: US-ASTRAZENECA-2013SE23864

PATIENT
  Age: 65 Year
  Sex: Female

DRUGS (14)
  1. PRILOSEC [Suspect]
     Indication: GASTROOESOPHAGEAL REFLUX DISEASE
     Route: 048
  2. CRESTOR [Suspect]
     Indication: BLOOD CHOLESTEROL ABNORMAL
     Route: 048
  3. METOPROLOL TARTRATE [Concomitant]
     Indication: BLOOD PRESSURE ABNORMAL
  4. ISOSORB [Concomitant]
     Indication: BLOOD PRESSURE ABNORMAL
  5. LOSARTIN POT [Concomitant]
     Indication: BLOOD PRESSURE ABNORMAL
  6. LASIX [Concomitant]
     Indication: BLOOD PRESSURE ABNORMAL
     Dosage: UNKNOWN DOSE DAILY
  7. COUMADIN [Concomitant]
  8. PROTONIX [Concomitant]
     Indication: GASTROOESOPHAGEAL REFLUX DISEASE
  9. XANAX [Concomitant]
     Indication: SLEEP DISORDER
  10. CELEXA [Concomitant]
     Indication: DEPRESSION
  11. LANTUS [Concomitant]
     Indication: DIABETES MELLITUS
  12. NOVALOG [Concomitant]
     Indication: DIABETES MELLITUS
  13. LIPITOR [Concomitant]
  14. ZOCOR [Concomitant]

REACTIONS (5)
  - Coronary artery restenosis [Unknown]
  - Weight decreased [Unknown]
  - Muscle spasms [Unknown]
  - Depression [Unknown]
  - Off label use [Unknown]
